FAERS Safety Report 15237673 (Version 5)
Quarter: 2020Q4

REPORT INFORMATION
  Report Type: Spontaneous
  Country: DE (occurrence: DE)
  Receive Date: 20180803
  Receipt Date: 20201215
  Transmission Date: 20210113
  Serious: Yes (Hospitalization, Other)
  Sender: FDA-Public Use
  Company Number: PHHY2017DE204464

PATIENT
  Age: 76 Year
  Sex: Male

DRUGS (36)
  1. IBUPROFEN. [Suspect]
     Active Substance: IBUPROFEN
     Indication: PRODUCT USED FOR UNKNOWN INDICATION
     Dosage: UNK
     Route: 065
  2. INFLIXIMAB [Concomitant]
     Active Substance: INFLIXIMAB
     Indication: PRODUCT USED FOR UNKNOWN INDICATION
     Dosage: UNK
     Route: 065
  3. NIVOLUMAB [Suspect]
     Active Substance: NIVOLUMAB
     Indication: MALIGNANT MELANOMA
     Dosage: 222 MG, BIW
     Route: 042
     Dates: start: 20170531, end: 20180123
  4. NIVOLUMAB [Suspect]
     Active Substance: NIVOLUMAB
     Dosage: 246 MG, UNK
     Route: 042
  5. NIVOLUMAB [Suspect]
     Active Substance: NIVOLUMAB
     Dosage: 86 MG, TIW
     Route: 042
     Dates: start: 20170531, end: 20170531
  6. NIVOLUMAB [Suspect]
     Active Substance: NIVOLUMAB
     Dosage: 222 MG
     Route: 042
     Dates: start: 20171108
  7. IPILIMUMAB [Suspect]
     Active Substance: IPILIMUMAB
     Dosage: 258 MG, TIW
     Route: 065
     Dates: start: 20170621, end: 20170621
  8. NIVOLUMAB [Suspect]
     Active Substance: NIVOLUMAB
     Dosage: 222 MG, UNK
     Route: 042
  9. NIVOLUMAB [Suspect]
     Active Substance: NIVOLUMAB
     Dosage: 222 MG
     Route: 042
     Dates: start: 20171122
  10. NIVOLUMAB [Suspect]
     Active Substance: NIVOLUMAB
     Dosage: 219 MG
     Route: 042
     Dates: start: 20171206
  11. NIVOLUMAB [Suspect]
     Active Substance: NIVOLUMAB
     Dosage: 219.6 MG
     Route: 042
     Dates: start: 20171220
  12. NIVOLUMAB [Suspect]
     Active Substance: NIVOLUMAB
     Dosage: 243 MG
     Route: 042
     Dates: start: 20180123
  13. PREDNISOLONE. [Concomitant]
     Active Substance: PREDNISOLONE
     Indication: PRODUCT USED FOR UNKNOWN INDICATION
     Dosage: UNK
     Route: 065
  14. IPILIMUMAB [Suspect]
     Active Substance: IPILIMUMAB
     Dosage: 258 MG, TIW
     Route: 065
     Dates: start: 20170531, end: 20170531
  15. NIVOLUMAB [Suspect]
     Active Substance: NIVOLUMAB
     Dosage: 219 MG, UNK
     Route: 042
  16. LOPERAMIDE HYDROCHLORIDE. [Concomitant]
     Active Substance: LOPERAMIDE HYDROCHLORIDE
     Indication: PRODUCT USED FOR UNKNOWN INDICATION
     Dosage: UNK
     Route: 065
  17. MOMETASONE FUROATE. [Concomitant]
     Active Substance: MOMETASONE FUROATE
     Dosage: DAILY DOSE: 2
     Route: 065
  18. LAUROMACROGOL 400 [Concomitant]
     Active Substance: POLIDOCANOL
     Indication: PRODUCT USED FOR UNKNOWN INDICATION
     Dosage: UNK
     Route: 065
  19. TOREMIFENI DIHYDROGENOCITRAS [Concomitant]
     Indication: PRODUCT USED FOR UNKNOWN INDICATION
     Dosage: 10 MG
     Route: 042
  20. DEXAMETHASON [Concomitant]
     Active Substance: DEXAMETHASONE
     Dosage: 4 MG, QD
     Route: 048
     Dates: start: 20171207
  21. IPILIMUMAB [Suspect]
     Active Substance: IPILIMUMAB
     Indication: MALIGNANT MELANOMA
     Dosage: 261 MG, Q3W
     Route: 065
     Dates: start: 20170531, end: 20170712
  22. SODIUM CHLORIDE. [Concomitant]
     Active Substance: SODIUM CHLORIDE
     Indication: PRODUCT USED FOR UNKNOWN INDICATION
     Dosage: UNK
     Route: 065
  23. POLIDOCANOL. [Concomitant]
     Active Substance: POLIDOCANOL
     Indication: PRODUCT USED FOR UNKNOWN INDICATION
     Dosage: UNK
     Route: 065
  24. NIVOLUMAB [Suspect]
     Active Substance: NIVOLUMAB
     Dosage: 243 MG, UNK
     Route: 042
  25. NIVOLUMAB [Suspect]
     Active Substance: NIVOLUMAB
     Dosage: 219.6 MG
     Route: 042
  26. NIVOLUMAB [Suspect]
     Active Substance: NIVOLUMAB
     Dosage: 87 MG, TIW
     Route: 042
     Dates: start: 20170712
  27. PREDNISOLONE HEMISUCCINATE [Concomitant]
     Active Substance: PREDNISOLONE HEMISUCCINATE
     Indication: PRODUCT USED FOR UNKNOWN INDICATION
     Dosage: UNK
     Route: 065
  28. NIVOLUMAB [Suspect]
     Active Substance: NIVOLUMAB
     Dosage: 86 MG, TIW
     Route: 042
     Dates: start: 20170621, end: 20170621
  29. NIVOLUMAB [Suspect]
     Active Substance: NIVOLUMAB
     Dosage: 246 MG
     Route: 042
     Dates: start: 20170901
  30. NIVOLUMAB [Suspect]
     Active Substance: NIVOLUMAB
     Dosage: 246 MG
     Route: 042
     Dates: start: 20171024
  31. NIVOLUMAB [Suspect]
     Active Substance: NIVOLUMAB
     Dosage: 243 MG
     Route: 042
     Dates: start: 20180109
  32. MOMETASONE FUROATE. [Concomitant]
     Active Substance: MOMETASONE FUROATE
     Indication: PRODUCT USED FOR UNKNOWN INDICATION
     Dosage: UNK
     Route: 065
     Dates: start: 20180419
  33. FUROSEMID [Concomitant]
     Active Substance: FUROSEMIDE
     Indication: PRODUCT USED FOR UNKNOWN INDICATION
     Dosage: 80 MG
     Route: 065
     Dates: start: 20170215, end: 20170920
  34. DEXAMETHASON [Concomitant]
     Active Substance: DEXAMETHASONE
     Indication: PRODUCT USED FOR UNKNOWN INDICATION
     Dosage: 8 MG, QD
     Route: 048
     Dates: start: 20171117, end: 20171122
  35. CARBIMAZOLE [Suspect]
     Active Substance: CARBIMAZOLE
     Indication: PRODUCT USED FOR UNKNOWN INDICATION
     Dosage: UNK
     Route: 065
  36. IPILIMUMAB [Suspect]
     Active Substance: IPILIMUMAB
     Dosage: 261 MG, TIW
     Route: 065
     Dates: start: 20170712

REACTIONS (20)
  - Colitis [Recovered/Resolved]
  - Hypersensitivity [Recovered/Resolved]
  - Aphasia [Unknown]
  - Fall [Recovered/Resolved]
  - Decreased appetite [Unknown]
  - Hyperthyroidism [Recovered/Resolved]
  - Urticaria [Recovered/Resolved]
  - Inappropriate antidiuretic hormone secretion [Recovered/Resolved]
  - Adverse event [Unknown]
  - Left ventricular dysfunction [Not Recovered/Not Resolved]
  - Diarrhoea [Not Recovered/Not Resolved]
  - Pruritus [Unknown]
  - Hypocalcaemia [Recovered/Resolved]
  - Hypotension [Recovered/Resolved]
  - Dehydration [Recovered/Resolved]
  - Colitis [Recovered/Resolved]
  - Vertigo [Recovered/Resolved]
  - Off label use [Unknown]
  - Rash maculo-papular [Recovered/Resolved]
  - Fatigue [Recovered/Resolved]

NARRATIVE: CASE EVENT DATE: 20170604
